FAERS Safety Report 4401682-0 (Version None)
Quarter: 2004Q3

REPORT INFORMATION
  Report Type: 
  Country: None (occurrence: None)
  Receive Date: 20040719
  Receipt Date: 20040618
  Transmission Date: 20050211
  Serious: Yes (Life-Threatening, Hospitalization)
  Sender: FDA-Public Use
  Company Number: FR-GLAXOSMITHKLINE-B0336207A

PATIENT
  Age: 17 Year
  Sex: Female

DRUGS (6)
  1. AMOXICILLIN [Suspect]
     Dosage: 1G PER DAY
     Route: 042
     Dates: start: 20030601, end: 20030601
  2. ULTIVA [Suspect]
     Dates: start: 20030601, end: 20030601
  3. ATARAX [Suspect]
     Dosage: 50MG SINGLE DOSE
     Dates: start: 20030601, end: 20030601
  4. TAGAMET [Suspect]
     Dosage: 200MG SINGLE DOSE
     Route: 048
     Dates: start: 20030601, end: 20030601
  5. HYPNOVEL [Suspect]
     Dates: start: 20030601, end: 20030601
  6. DIPRIVAN [Concomitant]
     Dates: start: 20030601, end: 20030601

REACTIONS (5)
  - ANAPHYLACTIC SHOCK [None]
  - BRONCHOSPASM [None]
  - HYPOTENSION [None]
  - PNEUMOTHORAX [None]
  - TACHYCARDIA [None]
